FAERS Safety Report 5810056-7 (Version None)
Quarter: 2008Q3

REPORT INFORMATION
  Report Type: 
  Country: None (occurrence: None)
  Receive Date: 20080715
  Receipt Date: 20080710
  Transmission Date: 20090109
  Serious: Yes (Other)
  Sender: FDA-Public Use
  Company Number: A0737562A

PATIENT
  Age: 59 Year
  Sex: Female
  Weight: 95 kg

DRUGS (3)
  1. TOPOTECAN HYDROCHLORIDE [Suspect]
     Indication: OVARIAN NEOPLASM
     Route: 042
     Dates: start: 20080520
  2. INVESTIGATIONAL DRUG [Suspect]
     Indication: OVARIAN NEOPLASM
     Dosage: 20MG PER DAY
     Route: 048
     Dates: start: 20080521, end: 20080524
  3. GEMCITABINE [Concomitant]
     Indication: OVARIAN NEOPLASM
     Dates: start: 20071201, end: 20080401

REACTIONS (2)
  - GRANULOCYTES ABNORMAL [None]
  - NEUTROPHIL COUNT ABNORMAL [None]
